FAERS Safety Report 5508794-9 (Version None)
Quarter: 2007Q4

REPORT INFORMATION
  Report Type: 
  Country: None (occurrence: None)
  Receive Date: 20071105
  Receipt Date: 20071024
  Transmission Date: 20080405
  Serious: Yes (Disabling, Other)
  Sender: FDA-Public Use
  Company Number: A-US2007-14647

PATIENT
  Age: 65 Year
  Sex: Female
  Weight: 58.5 kg

DRUGS (3)
  1. TRACLEER [Suspect]
     Indication: PULMONARY HYPERTENSION
     Dosage: 62 MG, BID, ORAL
     Route: 048
     Dates: start: 20070401
  2. CYTOXAN [Suspect]
     Dates: start: 20060101
  3. CYTOXAN [Suspect]
     Dates: start: 20070401

REACTIONS (3)
  - HEADACHE [None]
  - PANCYTOPENIA [None]
  - THROAT TIGHTNESS [None]
